FAERS Safety Report 25807116 (Version 3)
Quarter: 2025Q4

REPORT INFORMATION
  Report Type: Report from Study
  Country: US (occurrence: US)
  Receive Date: 20250916
  Receipt Date: 20251016
  Transmission Date: 20260117
  Serious: Yes (Other)
  Sender: BAYER HEALTHCARE PHARMACEUTICALS INC.
  Company Number: US-BAYER-2025A053560

PATIENT
  Age: 69 Year
  Sex: Female
  Weight: 48.073 kg

DRUGS (27)
  1. ADEMPAS [Suspect]
     Active Substance: RIOCIGUAT
     Indication: Pulmonary arterial hypertension
     Dosage: UNK
     Route: 048
     Dates: start: 20211221
  2. ADEMPAS [Suspect]
     Active Substance: RIOCIGUAT
     Indication: Pulmonary arterial hypertension
     Dosage: 2.5 MG, TID
     Route: 048
  3. ADEMPAS [Suspect]
     Active Substance: RIOCIGUAT
     Indication: Pulmonary arterial hypertension
     Dosage: 2.5 MG, TID
     Route: 048
  4. ADEMPAS [Suspect]
     Active Substance: RIOCIGUAT
     Indication: Pulmonary arterial hypertension
     Dosage: 2.5 MG, TID
     Route: 048
  5. ADEMPAS [Suspect]
     Active Substance: RIOCIGUAT
     Indication: Pulmonary arterial hypertension
     Dosage: 2.5 MG, TID
     Route: 048
  6. ADEMPAS [Suspect]
     Active Substance: RIOCIGUAT
     Indication: Pulmonary arterial hypertension
     Dosage: 2.5 MG, TID
     Route: 048
  7. VELETRI [Suspect]
     Active Substance: EPOPROSTENOL
  8. WINREVAIR [Suspect]
     Active Substance: SOTATERCEPT-CSRK
  9. VITAMIN D2 [Concomitant]
     Active Substance: ERGOCALCIFEROL
  10. VALACYCLOVIR [Concomitant]
     Active Substance: VALACYCLOVIR HYDROCHLORIDE
  11. Omega-3 fish oil +vitamin d [Concomitant]
  12. VITAMINS [Concomitant]
     Active Substance: VITAMINS
  13. METHOCARBAMOL [Concomitant]
     Active Substance: METHOCARBAMOL
  14. ACETAMINOPHEN\HYDROCODONE [Concomitant]
     Active Substance: ACETAMINOPHEN\HYDROCODONE
  15. TYLENOL EXTRA STRENGTH [Concomitant]
     Active Substance: ACETAMINOPHEN
  16. LASIX [Concomitant]
     Active Substance: FUROSEMIDE
  17. DIGOXIN [Concomitant]
     Active Substance: DIGOXIN
  18. OPSUMIT [Concomitant]
     Active Substance: MACITENTAN
  19. FLONASE ALLERGY RELIEF [Concomitant]
     Active Substance: FLUTICASONE PROPIONATE
  20. TRAMADOL HCL [Concomitant]
     Active Substance: TRAMADOL HYDROCHLORIDE
  21. SPIRONOLACTONE [Concomitant]
     Active Substance: SPIRONOLACTONE
  22. PROBIOTICS NOS [Concomitant]
     Active Substance: PROBIOTICS NOS
  23. OXYGEN [Concomitant]
     Active Substance: OXYGEN
  24. DEXLANSOPRAZOLE DELAYED RELEASE [Concomitant]
     Active Substance: DEXLANSOPRAZOLE
  25. LOPERAMIDE [Concomitant]
     Active Substance: LOPERAMIDE
  26. POTASSIUM CHLORIDE [Concomitant]
     Active Substance: POTASSIUM CHLORIDE
  27. ZOLPIDEM TARTRATE [Concomitant]
     Active Substance: ZOLPIDEM TARTRATE

REACTIONS (15)
  - Haemorrhage [Not Recovered/Not Resolved]
  - Platelet count decreased [None]
  - Pyrexia [None]
  - Respiratory tract congestion [None]
  - Secretion discharge [None]
  - Osteopenia [None]
  - Arthralgia [None]
  - Increased tendency to bruise [None]
  - Pain [None]
  - Pain in jaw [None]
  - Injection site bruising [None]
  - Pain [Not Recovered/Not Resolved]
  - Fatigue [Not Recovered/Not Resolved]
  - Presyncope [Recovering/Resolving]
  - Epistaxis [Not Recovered/Not Resolved]

NARRATIVE: CASE EVENT DATE: 20250301
